FAERS Safety Report 18959929 (Version 1)
Quarter: 2021Q1

REPORT INFORMATION
  Report Type: Spontaneous
  Country: CA (occurrence: CA)
  Receive Date: 20210302
  Receipt Date: 20210302
  Transmission Date: 20210420
  Serious: Yes (Other)
  Sender: FDA-Public Use
  Company Number: CA-PURDUE-USA-2021-0224443

PATIENT
  Age: 54 Year
  Sex: Male

DRUGS (3)
  1. MORPHINE SULFATE (SIMILAR TO NDA 19?516) [Suspect]
     Active Substance: MORPHINE SULFATE
     Indication: HEPATIC PAIN
     Dosage: UNK
     Route: 065
  2. MORPHINE SULFATE (SIMILAR TO NDA 19?516) [Suspect]
     Active Substance: MORPHINE SULFATE
     Dosage: UNK
     Route: 065
  3. LENVIMA [Concomitant]
     Active Substance: LENVATINIB
     Indication: HEPATOCELLULAR CARCINOMA
     Dosage: 12 MG, UNK
     Route: 048
     Dates: start: 20210122

REACTIONS (5)
  - Hypertension [Unknown]
  - Hepatomegaly [Unknown]
  - Rash macular [Unknown]
  - Hepatic pain [Unknown]
  - Malaise [Unknown]

NARRATIVE: CASE EVENT DATE: 20210206
